FAERS Safety Report 5012879-3 (Version None)
Quarter: 2006Q2

REPORT INFORMATION
  Report Type: 
  Country: None (occurrence: None)
  Receive Date: 20060530
  Receipt Date: 20060425
  Transmission Date: 20061013
  Serious: Yes (Other)
  Sender: FDA-Public Use
  Company Number: PHEH2006US05452

PATIENT
  Age: 73 Year
  Sex: Male

DRUGS (4)
  1. FORADIL [Suspect]
     Indication: ASTHMA
     Dates: start: 20050701, end: 20050701
  2. FORADIL [Suspect]
     Dates: start: 20060417
  3. PULMICORT [Suspect]
     Indication: ASTHMA
     Dates: start: 20050701, end: 20050701
  4. PULMICORT [Suspect]
     Dates: start: 20060417

REACTIONS (5)
  - ASTHMA [None]
  - DRUG INEFFECTIVE [None]
  - PLEURAL EFFUSION [None]
  - PNEUMONIA [None]
  - WHEEZING [None]
